FAERS Safety Report 24342316 (Version 1)
Quarter: 2024Q3

REPORT INFORMATION
  Report Type: Spontaneous
  Country: CN (occurrence: CN)
  Receive Date: 20240920
  Receipt Date: 20240920
  Transmission Date: 20241017
  Serious: Yes (Other)
  Sender: JOHNSON AND JOHNSON
  Company Number: CN-JNJFOC-20240937495

PATIENT
  Sex: Male
  Weight: 42 kg

DRUGS (1)
  1. CONCERTA [Suspect]
     Active Substance: METHYLPHENIDATE HYDROCHLORIDE
     Indication: Attention deficit hyperactivity disorder
     Dosage: 18 MG*15 TABLETS/BOTTLE:  1 TABLET WAS TAKEN WITH BREAKFAST EVERY DAY
     Route: 048
     Dates: start: 202310

REACTIONS (2)
  - Arrhythmia [Unknown]
  - Treatment noncompliance [Unknown]
